FAERS Safety Report 8001611-7 (Version None)
Quarter: 2011Q4

REPORT INFORMATION
  Report Type: 
  Country: None (occurrence: None)
  Receive Date: 20111219
  Receipt Date: 20111209
  Transmission Date: 20120403
  Serious: Yes (Other)
  Sender: FDA-Public Use
  Company Number: 1000026320

PATIENT
  Age: 72 Year
  Sex: Male

DRUGS (2)
  1. DILTIAZEM HYDROCHLORIDE [Suspect]
     Dosage: 300 MG (300 MG, 1 IN 1 D)
  2. DILTIAZEM HYDROCHLORIDE [Suspect]

REACTIONS (2)
  - JAUNDICE [None]
  - HEPATOTOXICITY [None]
